FAERS Safety Report 12267995 (Version 7)
Quarter: 2017Q1

REPORT INFORMATION
  Report Type: Spontaneous
  Country: US (occurrence: US)
  Receive Date: 20160414
  Receipt Date: 20170220
  Transmission Date: 20170428
  Serious: Yes (Hospitalization, Disabling, Other)
  Sender: FDA-Public Use
  Company Number: US-009507513-1604USA008381

PATIENT
  Sex: Female

DRUGS (4)
  1. ACTONEL [Suspect]
     Active Substance: RISEDRONATE SODIUM
     Indication: OSTEOPENIA
     Dosage: 5 MG, QD
     Route: 065
     Dates: start: 20041013
  2. CELEBREX [Concomitant]
     Active Substance: CELECOXIB
     Indication: ARTHRITIS
     Dosage: UNK
     Route: 048
     Dates: start: 1995
  3. FOSAMAX [Suspect]
     Active Substance: ALENDRONATE SODIUM
     Indication: OSTEOPOROSIS
     Dosage: 70 MG, QW
     Route: 048
     Dates: start: 1998, end: 20100916
  4. FOSAMAX [Suspect]
     Active Substance: ALENDRONATE SODIUM
     Indication: OSTEOPENIA

REACTIONS (41)
  - Periodontitis [Unknown]
  - Thyroid mass [Unknown]
  - Aortic arteriosclerosis [Unknown]
  - Hypoaesthesia [Unknown]
  - Osteitis [Unknown]
  - Hypoaesthesia [Not Recovered/Not Resolved]
  - Vertebral foraminal stenosis [Unknown]
  - Lymphadenopathy [Unknown]
  - Arthralgia [Not Recovered/Not Resolved]
  - Joint arthroplasty [Unknown]
  - Tooth impacted [Unknown]
  - Ankle fracture [Unknown]
  - Pleural thickening [Unknown]
  - Anxiety [Not Recovered/Not Resolved]
  - Jaw fracture [Unknown]
  - Mobility decreased [Not Recovered/Not Resolved]
  - Pulmonary granuloma [Unknown]
  - Emphysema [Unknown]
  - Spinal osteoarthritis [Unknown]
  - Peripheral arthritis [Unknown]
  - Osteonecrosis of jaw [Recovered/Resolved]
  - Muscular weakness [Not Recovered/Not Resolved]
  - Wound dehiscence [Recovered/Resolved with Sequelae]
  - Incision site abscess [Recovering/Resolving]
  - Pharyngitis [Unknown]
  - Pulmonary calcification [Unknown]
  - Carotid arteriosclerosis [Unknown]
  - Osteomyelitis [Unknown]
  - Rotator cuff syndrome [Unknown]
  - Intervertebral disc degeneration [Unknown]
  - Dental prosthesis placement [Unknown]
  - Hyperparathyroidism [Unknown]
  - Spondylolisthesis [Unknown]
  - Depression [Not Recovered/Not Resolved]
  - Tooth loss [Unknown]
  - Dental prosthesis placement [Unknown]
  - Peroneal nerve injury [Unknown]
  - Body dysmorphic disorder [Not Recovered/Not Resolved]
  - Tooth extraction [Unknown]
  - Dental prosthesis placement [Unknown]
  - Body height decreased [Unknown]

NARRATIVE: CASE EVENT DATE: 2000
